FAERS Safety Report 6206874-6 (Version None)
Quarter: 2009Q2

REPORT INFORMATION
  Report Type: 
  Country: None (occurrence: None)
  Receive Date: 20090528
  Receipt Date: 20090518
  Transmission Date: 20091009
  Serious: Yes (Life-Threatening, Hospitalization)
  Sender: FDA-Public Use
  Company Number: JP-WATSON-2009-03516

PATIENT
  Age: 60 Year
  Sex: Female

DRUGS (4)
  1. PROPRANOLOL [Suspect]
     Indication: BLOOD PRESSURE MANAGEMENT
     Dosage: 0.6 MG,
     Route: 042
     Dates: start: 20080101
  2. PROSTAGLANDIN E1 [Suspect]
     Indication: BLOOD PRESSURE MANAGEMENT
     Dosage: 0.03 UG/KG PER MINUTE, CONTINUOUS INFUSION
     Route: 042
     Dates: start: 20080101
  3. PROPOFOL [Suspect]
     Indication: GENERAL ANAESTHESIA
     Dosage: 4 MG/KG/HOUR, MAINTENANCE DOSE
     Route: 042
     Dates: start: 20080101
  4. FENTANYL-100 [Concomitant]
     Indication: GENERAL ANAESTHESIA
     Dosage: UNK
     Route: 042

REACTIONS (5)
  - ARTERIOSPASM CORONARY [None]
  - CARDIAC ARREST [None]
  - ELECTROCARDIOGRAM ST SEGMENT ELEVATION [None]
  - HYPOTENSION [None]
  - VENTRICULAR TACHYCARDIA [None]
